FAERS Safety Report 5035400-2 (Version None)
Quarter: 2006Q2

REPORT INFORMATION
  Report Type: 
  Country: None (occurrence: None)
  Receive Date: 20060525
  Receipt Date: 20060316
  Transmission Date: 20061013
  Serious: No
  Sender: FDA-Public Use
  Company Number: 2006US002888

PATIENT
  Age: 8 Year
  Sex: Female
  Weight: 23 kg

DRUGS (1)
  1. ALOXI [Suspect]
     Indication: PROPHYLAXIS OF NAUSEA AND VOMITING
     Dosage: 0.25 MG, INTRAVENOUS
     Route: 042

REACTIONS (4)
  - DRUG EFFECT DECREASED [None]
  - NAUSEA [None]
  - OFF LABEL USE [None]
  - VOMITING [None]
